FAERS Safety Report 9441631 (Version 1)
Quarter: 2013Q3

REPORT INFORMATION
  Report Type: Spontaneous
  Country: US (occurrence: US)
  Receive Date: 20130806
  Receipt Date: 20130806
  Transmission Date: 20140515
  Serious: No
  Sender: FDA-Public Use
  Company Number: US-009507513-1307USA012364

PATIENT
  Sex: Male

DRUGS (1)
  1. TAFLUPROST [Suspect]
     Route: 047

REACTIONS (1)
  - Adverse event [Unknown]
